FAERS Safety Report 7936863-2 (Version None)
Quarter: 2011Q4

REPORT INFORMATION
  Report Type: 
  Country: None (occurrence: None)
  Receive Date: 20111123
  Receipt Date: 20111123
  Transmission Date: 20120403
  Serious: Yes (Other)
  Sender: FDA-Public Use
  Company Number: None

PATIENT
  Age: 69 Year
  Sex: Male
  Weight: 94.347 kg

DRUGS (11)
  1. GLIPIZIDE [Concomitant]
     Route: 048
  2. LABETALOL HCL [Concomitant]
  3. AMLODIPINE [Concomitant]
     Route: 048
  4. ACTOS [Suspect]
     Indication: TYPE 2 DIABETES MELLITUS
     Dosage: 30MG
     Route: 048
     Dates: start: 20030101, end: 20111107
  5. ASPIRIN [Concomitant]
     Route: 048
  6. LISINOPRIL [Concomitant]
     Route: 048
  7. VICODIN [Concomitant]
     Route: 048
  8. HYDROCHLOROTHIAZIDE [Concomitant]
     Route: 048
  9. MULTIVITAMIN WITH MINERALS -PRESERVISION [Concomitant]
  10. SYNTHROID [Concomitant]
     Route: 048
  11. METFORMIN [Concomitant]
     Route: 048

REACTIONS (1)
  - BLADDER CANCER [None]
